FAERS Safety Report 7012230-3 (Version None)
Quarter: 2010Q3

REPORT INFORMATION
  Report Type: 
  Country: None (occurrence: None)
  Receive Date: 20100924
  Receipt Date: 20100921
  Transmission Date: 20110219
  Serious: Yes (Death, Other)
  Sender: FDA-Public Use
  Company Number: JP-NOVOPROD-315143

PATIENT
  Age: 43 Year
  Sex: Male
  Weight: 85 kg

DRUGS (9)
  1. VICTOZA [Suspect]
     Indication: TYPE 2 DIABETES MELLITUS
     Dosage: 0.3 - 0.9 MG, QD
     Route: 058
     Dates: start: 20100611
  2. AMARYL [Concomitant]
     Indication: TYPE 2 DIABETES MELLITUS
     Dosage: 1 MG, QD
     Route: 048
     Dates: end: 20100611
  3. ECARDIL D [Concomitant]
     Dosage: 1 TAB PO DAILY
  4. PRANLUKAST [Concomitant]
     Dosage: 2 TABS PO DAILY
  5. DIBETOS                            /00036101/ [Concomitant]
     Dosage: 200 MG PO DIALY
     Dates: end: 20100611
  6. ACTOS [Concomitant]
     Dosage: 2 TABS PO DAILY
     Dates: end: 20100611
  7. VOGLIBOSE [Concomitant]
     Dosage: 4 TABS PO DAILY
  8. ANISTO [Concomitant]
     Dosage: 1 TAB PO DAILY
  9. SUPLATAST TOSILATE [Concomitant]
     Dosage: 2 TABS PO DAILY

REACTIONS (2)
  - CARDIAC ARREST [None]
  - HEAT ILLNESS [None]
